FAERS Safety Report 12962071 (Version 1)
Quarter: 2016Q4

REPORT INFORMATION
  Report Type: Report from Study
  Country: FR (occurrence: FR)
  Receive Date: 20161121
  Receipt Date: 20161121
  Transmission Date: 20170207
  Serious: Yes (Other)
  Sender: FDA-Public Use
  Company Number: FR-ROCHE-768936

PATIENT

DRUGS (14)
  1. ETOPOSIDE. [Suspect]
     Active Substance: ETOPOSIDE
     Indication: MANTLE CELL LYMPHOMA
     Dosage: DAYS 4-7
     Route: 042
  2. CISPLATIN. [Suspect]
     Active Substance: CISPLATIN
     Indication: MANTLE CELL LYMPHOMA
     Route: 042
  3. CYTARABINE. [Suspect]
     Active Substance: CYTARABINE
     Indication: MANTLE CELL LYMPHOMA
     Dosage: EVERY 12 HOUR ON DAYS 4-7
     Route: 042
  4. CYTARABINE. [Suspect]
     Active Substance: CYTARABINE
     Dosage: 4 TIMES.
     Route: 042
  5. CYCLOPHOSPHAMIDE. [Suspect]
     Active Substance: CYCLOPHOSPHAMIDE
     Indication: MANTLE CELL LYMPHOMA
     Dosage: DOSE: 2 X 60 MG/KG
     Route: 042
  6. PREDNISONE. [Suspect]
     Active Substance: PREDNISONE
     Indication: MANTLE CELL LYMPHOMA
     Dosage: DAYS 1-5
     Route: 048
  7. DEXAMETHASONE. [Suspect]
     Active Substance: DEXAMETHASONE
     Indication: MANTLE CELL LYMPHOMA
     Dosage: DAYS 1-10
     Route: 048
  8. VINCRISTINE [Suspect]
     Active Substance: VINCRISTINE
     Indication: MANTLE CELL LYMPHOMA
     Dosage: DAY 1
     Route: 042
  9. MELPHALAN [Suspect]
     Active Substance: MELPHALAN
     Indication: MANTLE CELL LYMPHOMA
     Route: 042
  10. CYCLOPHOSPHAMIDE. [Suspect]
     Active Substance: CYCLOPHOSPHAMIDE
     Dosage: DAY 1
     Route: 042
  11. CARMUSTINE [Suspect]
     Active Substance: CARMUSTINE
     Indication: MANTLE CELL LYMPHOMA
     Dosage: DAY 2
     Route: 042
  12. CYTARABINE. [Suspect]
     Active Substance: CYTARABINE
     Dosage: INTRAVENOUSLY EVERY 12 H ON DAY 2
     Route: 042
  13. RITUXIMAB [Suspect]
     Active Substance: RITUXIMAB
     Indication: MANTLE CELL LYMPHOMA
     Route: 042
  14. DOXORUBICIN [Suspect]
     Active Substance: DOXORUBICIN
     Indication: MANTLE CELL LYMPHOMA
     Dosage: DAY 1
     Route: 042

REACTIONS (29)
  - Vomiting [Unknown]
  - Pulmonary function test abnormal [Unknown]
  - Weight decreased [Unknown]
  - Haemorrhage [Unknown]
  - Granulocytes abnormal [Unknown]
  - White blood cell disorder [Unknown]
  - Mucosal inflammation [Unknown]
  - Hypersensitivity [Unknown]
  - Infection [Unknown]
  - Transaminases abnormal [Unknown]
  - Arrhythmia [Unknown]
  - Arthralgia [Unknown]
  - Haemoglobin abnormal [Unknown]
  - Blood creatinine abnormal [Unknown]
  - Nausea [Unknown]
  - Diarrhoea [Unknown]
  - Treatment failure [Unknown]
  - Fatigue [Unknown]
  - Febrile neutropenia [Unknown]
  - Platelet disorder [Unknown]
  - White blood cell count abnormal [Unknown]
  - Blood bilirubin abnormal [Unknown]
  - Cardiac function test abnormal [Unknown]
  - Depression [Unknown]
  - Alopecia [Unknown]
  - Hepatotoxicity [Unknown]
  - Constipation [Unknown]
  - Neuropathy peripheral [Unknown]
  - Myalgia [Unknown]
